FAERS Safety Report 24184052 (Version 4)
Quarter: 2025Q4

REPORT INFORMATION
  Report Type: Report from Study
  Country: US (occurrence: US)
  Receive Date: 20240807
  Receipt Date: 20251107
  Transmission Date: 20260117
  Serious: Yes (Hospitalization, Other)
  Sender: TAKEDA
  Company Number: US-TAKEDA-2024TUS078711

PATIENT
  Age: 71 Year
  Sex: Female

DRUGS (1)
  1. HUMAN IMMUNOGLOBULIN G\HYALURONIDASE RECOMBINANT HUMAN [Suspect]
     Active Substance: HUMAN IMMUNOGLOBULIN G\HYALURONIDASE (HUMAN RECOMBINANT)
     Indication: Product used for unknown indication
     Dosage: UNK

REACTIONS (4)
  - Pneumonia [Unknown]
  - Arthritis [Unknown]
  - COVID-19 [Unknown]
  - Infusion site erythema [Recovered/Resolved]
